APPROVED DRUG PRODUCT: LAMOTRIGINE
Active Ingredient: LAMOTRIGINE
Strength: 50MG
Dosage Form/Route: TABLET, EXTENDED RELEASE;ORAL
Application: A213949 | Product #002 | TE Code: AB
Applicant: YILING PHARMACEUTICAL LTD
Approved: Dec 8, 2021 | RLD: No | RS: No | Type: RX